FAERS Safety Report 5065090-4 (Version None)
Quarter: 2006Q3

REPORT INFORMATION
  Report Type: 
  Country: None (occurrence: None)
  Receive Date: 20060703
  Receipt Date: 20060331
  Transmission Date: 20061208
  Serious: No
  Sender: FDA-Public Use
  Company Number: 200612020BWH

PATIENT
  Age: 63 Year
  Sex: Male

DRUGS (12)
  1. LEVITRA [Suspect]
     Indication: ERECTILE DYSFUNCTION
     Dosage: 20 MG, OW, ORAL
     Route: 048
     Dates: start: 20060301
  2. CARABAMAZEPINE [Concomitant]
  3. PHENOBARBITAL TAB [Concomitant]
  4. LANOXIN [Concomitant]
  5. CAPTOPRIL [Concomitant]
  6. KLOR-CON [Concomitant]
  7. FUROSEMIDE [Concomitant]
  8. GLUCOSAMINE SULFATE WITH CHONDROITIN SULFATE [Concomitant]
  9. TESTOSTERONE [Concomitant]
  10. CRESTOR [Concomitant]
  11. ASPIRIN [Concomitant]
  12. COMBIVENT [Concomitant]

REACTIONS (1)
  - ERECTILE DYSFUNCTION [None]
